FAERS Safety Report 15787616 (Version 3)
Quarter: 2019Q1

REPORT INFORMATION
  Report Type: Report from Study
  Country: None (occurrence: CH)
  Receive Date: 20190103
  Receipt Date: 20190205
  Transmission Date: 20190417
  Serious: Yes (Hospitalization, Other)
  Sender: FDA-Public Use
  Company Number: CH-ABBVIE-18S-151-2607340-00

PATIENT
  Age: 79 Year
  Sex: Male

DRUGS (4)
  1. DUODOPA [Suspect]
     Active Substance: CARBIDOPA\LEVODOPA
     Dosage: MORNING 7ML, DAY 2.7ML/H, CR-NIGHT 2.2ML/H, ED1.8ML?24H THERAPY
     Route: 050
     Dates: start: 20180612
  2. DUODOPA [Suspect]
     Active Substance: CARBIDOPA\LEVODOPA
     Dosage: MORNING 7ML, DAY 2.5ML/H, NIGHT 2.1ML/H, EXTRA DOSE 1.5ML?24H THERAPY
     Route: 050
     Dates: start: 20180419, end: 20180612
  3. DUODOPA [Suspect]
     Active Substance: CARBIDOPA\LEVODOPA
     Indication: PARKINSON^S DISEASE
     Route: 050
     Dates: start: 20151027, end: 20170419
  4. DUODOPA [Suspect]
     Active Substance: CARBIDOPA\LEVODOPA
     Dosage: MD 7ML, CRD 2.7ML/H, CRN 2.2ML/H, ED 1.8ML, BLOCKING TIME ED1 H?24 H THERAPY
     Route: 050

REACTIONS (5)
  - Pneumonia aspiration [Recovered/Resolved]
  - Device issue [Recovered/Resolved]
  - Dysphagia [Unknown]
  - Dysarthria [Unknown]
  - Device occlusion [Unknown]

NARRATIVE: CASE EVENT DATE: 20181225
